FAERS Safety Report 19534698 (Version 2)
Quarter: 2021Q3

REPORT INFORMATION
  Report Type: Report from Study
  Country: AT (occurrence: AT)
  Receive Date: 20210713
  Receipt Date: 20210802
  Transmission Date: 20211014
  Serious: Yes (Other)
  Sender: FDA-Public Use
  Company Number: AT-PFIZER INC-2021794287

PATIENT
  Age: 82 Year
  Sex: Female
  Weight: 70 kg

DRUGS (14)
  1. PACLITAXEL. [Suspect]
     Active Substance: PACLITAXEL
     Indication: HER2 POSITIVE BREAST CANCER
     Dosage: 80 MG/M2 WEEKLY, MOST RECENT DOSE PRIOR TO THE EVENT: 21AUG2019
     Route: 042
     Dates: start: 20190731, end: 20190814
  2. GALVUS [Concomitant]
     Active Substance: VILDAGLIPTIN
     Dosage: UNK
  3. HYDROCHLOROTHIAZID [Concomitant]
     Active Substance: HYDROCHLOROTHIAZIDE
     Dates: start: 20190711, end: 20200616
  4. LOPERAMID [Concomitant]
     Active Substance: LOPERAMIDE
     Indication: DIARRHOEA
     Dates: start: 20190821, end: 20191030
  5. LOVENOX [Concomitant]
     Active Substance: ENOXAPARIN SODIUM
     Dates: start: 20191008, end: 20191218
  6. RAMIPRIL. [Concomitant]
     Active Substance: RAMIPRIL
     Dates: start: 20190711, end: 20200618
  7. FUROSEMID [FUROSEMIDE] [Concomitant]
     Active Substance: FUROSEMIDE
     Dates: start: 20191211, end: 20200305
  8. ZOFRAN [Concomitant]
     Active Substance: ONDANSETRON HYDROCHLORIDE
     Dates: start: 20170726, end: 20200715
  9. THIAMAZOL [Concomitant]
     Active Substance: METHIMAZOLE
     Dates: start: 20191211, end: 20200618
  10. EPORATIO [Concomitant]
     Active Substance: ERYTHROPOIETIN
     Dates: start: 20191002, end: 20191218
  11. PERTUZUMAB. [Suspect]
     Active Substance: PERTUZUMAB
     Indication: HER2 POSITIVE BREAST CANCER
     Dosage: 840 MG, FREQUENCY: OTHER MOST RECENT DOSE PRIOR TO THE EVENT: 07AUG2019
     Route: 042
     Dates: start: 20190731, end: 20190731
  12. NOMEXOR [Concomitant]
     Active Substance: NEBIVOLOL HYDROCHLORIDE
     Dosage: UNK
     Dates: start: 20170305
  13. THROMBO ASS [Concomitant]
     Active Substance: ASPIRIN
     Dosage: UNK
     Dates: start: 20170305
  14. TRASTUZUMAB. [Suspect]
     Active Substance: TRASTUZUMAB
     Indication: HER2 POSITIVE BREAST CANCER
     Dosage: 8 MG/M2
     Route: 041
     Dates: start: 20190731, end: 20190731

REACTIONS (1)
  - Polyneuropathy [Recovered/Resolved]

NARRATIVE: CASE EVENT DATE: 20191120
